FAERS Safety Report 6592854-8 (Version None)
Quarter: 2010Q1

REPORT INFORMATION
  Report Type: 
  Country: None (occurrence: None)
  Receive Date: 20100212
  Receipt Date: 20100128
  Transmission Date: 20100710
  Serious: Yes (Hospitalization)
  Sender: FDA-Public Use
  Company Number: 2010SP004182

PATIENT
  Age: 67 Year
  Sex: Male

DRUGS (14)
  1. MIRTAZAPINE [Suspect]
     Indication: DEPRESSION
     Dosage: 15 MG;QD;PO, 30 MG;QD;PO, 45 MG;QD;PO, 15 MG;ONCE;PO
     Route: 048
     Dates: start: 20091010, end: 20091025
  2. MIRTAZAPINE [Suspect]
     Indication: DEPRESSION
     Dosage: 15 MG;QD;PO, 30 MG;QD;PO, 45 MG;QD;PO, 15 MG;ONCE;PO
     Route: 048
     Dates: start: 20091026, end: 20091113
  3. MIRTAZAPINE [Suspect]
     Indication: DEPRESSION
     Dosage: 15 MG;QD;PO, 30 MG;QD;PO, 45 MG;QD;PO, 15 MG;ONCE;PO
     Route: 048
     Dates: start: 20091114, end: 20091119
  4. MIRTAZAPINE [Suspect]
     Indication: DEPRESSION
     Dosage: 15 MG;QD;PO, 30 MG;QD;PO, 45 MG;QD;PO, 15 MG;ONCE;PO
     Route: 048
     Dates: start: 20091120, end: 20091121
  5. OLANZAPINE [Concomitant]
  6. MAGNESIUM OXIDE [Concomitant]
  7. SENNOSIDES A+B [Concomitant]
  8. TRIAZOLAM [Concomitant]
  9. BROTIZOLAM [Concomitant]
  10. MIANSERIN HYDROCHLORIDE [Concomitant]
  11. CHINESE HERBAL MEDICINE [Concomitant]
  12. CLOXAZOLAM [Concomitant]
  13. CLOMIPRAMINE HYDROCHLORIDE [Concomitant]
  14. QUETIAPINE FUMARATE [Concomitant]

REACTIONS (2)
  - INAPPROPRIATE ANTIDIURETIC HORMONE SECRETION [None]
  - PYREXIA [None]
